FAERS Safety Report 6788736-9 (Version None)
Quarter: 2010Q2

REPORT INFORMATION
  Report Type: 
  Country: None (occurrence: None)
  Receive Date: 20100623
  Receipt Date: 20080428
  Transmission Date: 20101027
  Serious: No
  Sender: FDA-Public Use
  Company Number: US-PFIZER INC-2008037149

PATIENT
  Sex: Female
  Weight: 63.5 kg

DRUGS (10)
  1. XALATAN [Suspect]
     Indication: GLAUCOMA
     Dates: start: 20070101
  2. AMLODIPINE [Concomitant]
     Indication: HYPERTENSION
  3. VYTORIN [Concomitant]
     Indication: BLOOD CHOLESTEROL INCREASED
  4. ACETYLSALICYLIC ACID [Concomitant]
  5. GLUCOSAMINE [Concomitant]
  6. DRUG, UNSPECIFIED [Concomitant]
     Indication: CARTILAGE INJURY
  7. VITAMIN B COMPLEX CAP [Concomitant]
  8. MULTI-VITAMINS [Concomitant]
  9. COENZYME Q10 [Concomitant]
  10. GINKGO BILOBA [Concomitant]

REACTIONS (2)
  - RASH [None]
  - SWELLING [None]
